FAERS Safety Report 4915186-X (Version None)
Quarter: 2006Q1

REPORT INFORMATION
  Report Type: 
  Country: None (occurrence: None)
  Receive Date: 20060216
  Receipt Date: 20060216
  Transmission Date: 20060701
  Serious: Yes (Hospitalization)
  Sender: FDA-Public Use
  Company Number: None

PATIENT
  Sex: Male
  Weight: 74.8435 kg

DRUGS (2)
  1. AMOXICILLIN [Suspect]
     Indication: DENTAL TREATMENT
     Dosage: 500 MG PO TID - PRIOR TO ADMISSION
     Route: 048
  2. VICODIN [Suspect]
     Indication: DENTAL TREATMENT
     Dosage: 1 TAB PO Q4-6H PRN - PRIOR TO ADMISSION
     Route: 048

REACTIONS (4)
  - ASTHENIA [None]
  - DYSPEPSIA [None]
  - FATIGUE [None]
  - VOMITING [None]
